FAERS Safety Report 9222441 (Version 1)
Quarter: 2013Q2

REPORT INFORMATION
  Report Type: Spontaneous
  Country: US (occurrence: US)
  Receive Date: 20130410
  Receipt Date: 20130410
  Transmission Date: 20140414
  Serious: No
  Sender: FDA-Public Use
  Company Number: US-BAUSCH-BL-2013-000529

PATIENT
  Age: 52 Year
  Sex: Female

DRUGS (1)
  1. ZIRGAN [Suspect]
     Indication: HERPES OPHTHALMIC
     Dosage: ONE DROP INTO RIGHT EYE 4-5 TIMES DAILY
     Route: 047
     Dates: start: 20130131, end: 20130202

REACTIONS (6)
  - Anxiety [Recovered/Resolved]
  - Panic attack [Recovered/Resolved]
  - Hypoaesthesia [Recovered/Resolved]
  - Paraesthesia [Recovered/Resolved]
  - Chest discomfort [Recovered/Resolved]
  - Dyspnoea [Recovered/Resolved]
